FAERS Safety Report 6250505-6 (Version None)
Quarter: 2009Q2

REPORT INFORMATION
  Report Type: 
  Country: None (occurrence: None)
  Receive Date: 20090630
  Receipt Date: 20090617
  Transmission Date: 20091009
  Serious: Yes (Hospitalization)
  Sender: FDA-Public Use
  Company Number: ES-ROCHE-638874

PATIENT
  Age: 43 Year
  Sex: Female

DRUGS (2)
  1. PEGASYS [Suspect]
     Route: 065
     Dates: start: 20080601, end: 20081001
  2. COPEGUS [Suspect]
     Route: 065
     Dates: start: 20080601, end: 20081001

REACTIONS (6)
  - ANAEMIA [None]
  - ANXIETY [None]
  - DEMYELINATING POLYNEUROPATHY [None]
  - HYPOTHYROIDISM [None]
  - LEUKOPENIA [None]
  - PERSONALITY DISORDER [None]
